FAERS Safety Report 18760968 (Version 2)
Quarter: 2024Q3

REPORT INFORMATION
  Report Type: Spontaneous
  Country: US (occurrence: US)
  Receive Date: 20210120
  Receipt Date: 20240904
  Transmission Date: 20241017
  Serious: Yes (Hospitalization)
  Sender: CIPLA
  Company Number: US-CIPLA (EU) LIMITED-2021US00168

PATIENT

DRUGS (1)
  1. ALBUTEROL [Suspect]
     Active Substance: ALBUTEROL
     Indication: Product used for unknown indication
     Dosage: UNK, PRN (WHENEVER IT WAS NEEDED)
     Route: 065
     Dates: start: 20210101, end: 20210101

REACTIONS (3)
  - Asthma [Unknown]
  - Drug delivery system issue [Unknown]
  - Device defective [Unknown]

NARRATIVE: CASE EVENT DATE: 20210101
